FAERS Safety Report 14653520 (Version 1)
Quarter: 2018Q1

REPORT INFORMATION
  Report Type: Spontaneous
  Country: US (occurrence: US)
  Receive Date: 20180316
  Receipt Date: 20180316
  Transmission Date: 20180509
  Serious: Yes (Hospitalization)
  Sender: FDA-Public Use
  Company Number: None

PATIENT
  Age: 55 Year
  Sex: Male

DRUGS (7)
  1. FENOFIBRATE. [Concomitant]
     Active Substance: FENOFIBRATE
  2. HCTZ [Concomitant]
     Active Substance: HYDROCHLOROTHIAZIDE
  3. GENVOYA [Suspect]
     Active Substance: COBICISTAT\ELVITEGRAVIR\EMTRICITABINE\TENOFOVIR ALAFENAMIDE FUMARATE
     Indication: HIV INFECTION
     Route: 048
     Dates: start: 20170824, end: 20180308
  4. BUPROPION. [Concomitant]
     Active Substance: BUPROPION
  5. AMLODIPINE [Concomitant]
     Active Substance: AMLODIPINE BESYLATE
  6. METOPROLOL. [Concomitant]
     Active Substance: METOPROLOL
  7. PAROXETINE. [Concomitant]
     Active Substance: PAROXETINE

REACTIONS (3)
  - Renal disorder [None]
  - Pancreatitis [None]
  - Creatinine renal clearance increased [None]

NARRATIVE: CASE EVENT DATE: 20180309
